FAERS Safety Report 15284648 (Version 1)
Quarter: 2018Q3

REPORT INFORMATION
  Report Type: Spontaneous
  Country: US (occurrence: US)
  Receive Date: 20180801
  Receipt Date: 20180801
  Transmission Date: 20181010
  Serious: Yes (Hospitalization)
  Sender: FDA-Public Use
  Company Number: None

PATIENT
  Sex: Male

DRUGS (10)
  1. CLONIDINE 0.1MG [Concomitant]
     Active Substance: CLONIDINE
  2. POTASSIUM CL 20MEQ ER [Concomitant]
  3. ALLOPURINOL 300MG [Concomitant]
     Active Substance: ALLOPURINOL
  4. OLMESARTAN/HCTZ 40/12.5MG [Concomitant]
  5. OCTREOTIDE. [Suspect]
     Active Substance: OCTREOTIDE
     Route: 058
     Dates: start: 20180109
  6. OXYCODONE/APAP 10/325MG [Concomitant]
     Active Substance: ACETAMINOPHEN\OXYCODONE HYDROCHLORIDE
  7. CHOLESTYRAMINE 4GRAM [Concomitant]
  8. DRONABINOL 5MG [Concomitant]
     Active Substance: DRONABINOL
  9. MAGNESIUM?OXIDE 400MG [Concomitant]
  10. VITAMIN D 50,000 UNITS [Concomitant]

REACTIONS (1)
  - Hospitalisation [None]
